FAERS Safety Report 5932250-7 (Version None)
Quarter: 2008Q4

REPORT INFORMATION
  Report Type: 
  Country: None (occurrence: None)
  Receive Date: 20081022
  Receipt Date: 20081007
  Transmission Date: 20090506
  Serious: Yes (Hospitalization)
  Sender: FDA-Public Use
  Company Number: JP-1167407

PATIENT
  Age: 56 Year
  Sex: Female

DRUGS (4)
  1. FLUORESCITE [Suspect]
     Indication: ANGIOGRAM RETINA
     Dosage: 5ML INTRAVENOUS BOLUS
     Route: 040
     Dates: start: 20080823, end: 20080823
  2. PROMOTIN CHEMIPHAR (KALLIDINOGENASE) [Concomitant]
  3. MECOBALAMIN (MECOBALAMIN) [Concomitant]
  4. AMLODIPINE BESYLATE [Concomitant]

REACTIONS (1)
  - CHILLS [None]
